FAERS Safety Report 4637005-1 (Version None)
Quarter: 2005Q2

REPORT INFORMATION
  Report Type: 
  Country: None (occurrence: None)
  Receive Date: 20050414
  Receipt Date: 20050406
  Transmission Date: 20051028
  Serious: Yes (Hospitalization)
  Sender: FDA-Public Use
  Company Number: 231928K04USA

PATIENT
  Age: 54 Year
  Sex: Female
  Weight: 90.7194 kg

DRUGS (1)
  1. REBIF [Suspect]
     Indication: MULTIPLE SCLEROSIS
     Dosage: 44 MCG, 3 IN 1 WEEKS, SUBCUTANEOUS
     Route: 058
     Dates: start: 20030618

REACTIONS (6)
  - BLOOD PRESSURE DIASTOLIC DECREASED [None]
  - COLONIC HAEMORRHAGE [None]
  - FATIGUE [None]
  - HAEMORRHAGE [None]
  - INJECTION SITE PAIN [None]
  - IRON DEFICIENCY ANAEMIA [None]
